FAERS Safety Report 5612912-1 (Version None)
Quarter: 2008Q1

REPORT INFORMATION
  Report Type: 
  Country: None (occurrence: None)
  Receive Date: 20080204
  Receipt Date: 20080123
  Transmission Date: 20080703
  Serious: Yes (Hospitalization, Other)
  Sender: FDA-Public Use
  Company Number: GB-PFIZER INC-2008007601

PATIENT
  Age: 49 Year
  Sex: Female

DRUGS (3)
  1. SERTRALINE [Suspect]
  2. RISPERIDONE [Suspect]
  3. CO-PROXAMOL [Suspect]

REACTIONS (2)
  - HEPATIC ENCEPHALOPATHY [None]
  - OVERDOSE [None]
